FAERS Safety Report 8733641 (Version 2)
Quarter: 2012Q4

REPORT INFORMATION
  Report Type: 
  Country: CA (occurrence: CA)
  Receive Date: 20120821
  Receipt Date: 20121001
  Transmission Date: 20130627
  Serious: Yes (Life-Threatening, Hospitalization)
  Sender: FDA-Public Use
  Company Number: PHHY2010CA69487

PATIENT
  Age: 59 Year
  Sex: Male

DRUGS (10)
  1. CLOZARIL [Suspect]
     Indication: SCHIZOPHRENIA
     Dosage: 225 mg daily
     Route: 048
     Dates: start: 20100723, end: 20101014
  2. ZYPREXA [Concomitant]
     Dosage: 30 mg
  3. SERTRALINE [Concomitant]
     Dosage: 120 mg, QD
     Route: 048
  4. SERTRALINE [Concomitant]
     Dosage: 125 mg daily
     Route: 048
  5. KEMADRIN [Concomitant]
     Dosage: 5 mg, BID
  6. UROMAX [Concomitant]
  7. CALCIUM WITH VITAMIN D [Concomitant]
  8. DOCUSATE [Concomitant]
  9. LOXAPINE [Concomitant]
     Dosage: 25 mg
     Route: 048
  10. CLONAZEPAM [Concomitant]
     Dosage: 0.5 mg, TID

REACTIONS (7)
  - Agranulocytosis [Recovered/Resolved]
  - Febrile neutropenia [Recovered/Resolved]
  - Neutrophil count decreased [Recovered/Resolved]
  - White blood cell count decreased [Recovered/Resolved]
  - Bone marrow failure [Unknown]
  - Anaemia [Unknown]
  - Pyrexia [Unknown]
